FAERS Safety Report 22926760 (Version 5)
Quarter: 2024Q3

REPORT INFORMATION
  Report Type: Report from Study
  Country: CA (occurrence: CA)
  Receive Date: 20230910
  Receipt Date: 20240924
  Transmission Date: 20241016
  Serious: Yes (Other)
  Sender: SANDOZ
  Company Number: CA-SANDOZ-SDZ2023CA025771

PATIENT
  Sex: Female

DRUGS (3)
  1. HYRIMOZ [Suspect]
     Active Substance: ADALIMUMAB-ADAZ
     Dosage: 40 MG
     Route: 058
  2. HYRIMOZ [Suspect]
     Active Substance: ADALIMUMAB-ADAZ
     Indication: Hidradenitis
     Dosage: 40 MG
     Route: 058
     Dates: start: 20230512
  3. HYRIMOZ [Suspect]
     Active Substance: ADALIMUMAB-ADAZ
     Dosage: WEEK 0=160 MG WEEK 2=80 MG THEN 40 MG EVERY WEEK BEGINNING AT WEEK 4; WEEKLY
     Route: 058

REACTIONS (6)
  - Surgery [Unknown]
  - Condition aggravated [Unknown]
  - Malaise [Unknown]
  - Injection site pain [Unknown]
  - Drug ineffective [Unknown]
  - Wrong technique in device usage process [Unknown]
